FAERS Safety Report 9918535 (Version 1)
Quarter: 2014Q1

REPORT INFORMATION
  Report Type: Spontaneous
  Country: US (occurrence: US)
  Receive Date: 20140224
  Receipt Date: 20140224
  Transmission Date: 20141002
  Serious: No
  Sender: FDA-Public Use
  Company Number: US-BIOGENIDEC-2014BI015135

PATIENT
  Sex: Female

DRUGS (12)
  1. TECFIDERA [Suspect]
     Indication: MULTIPLE SCLEROSIS
     Route: 048
     Dates: start: 201312
  2. VITAMIN D3 [Concomitant]
  3. FISH OIL [Concomitant]
  4. CALCIUM CITRATE + D [Concomitant]
  5. ASPIRIN [Concomitant]
  6. NUCYNTA ER [Concomitant]
  7. TEMAZEPAM [Concomitant]
  8. CYMBALTA [Concomitant]
  9. TOPAMAX [Concomitant]
  10. TRAMADOL HCL [Concomitant]
  11. ABILIFY [Concomitant]
  12. PROVIGIL [Concomitant]

REACTIONS (3)
  - Hand fracture [Not Recovered/Not Resolved]
  - Malaise [Unknown]
  - Abdominal discomfort [Unknown]
